FAERS Safety Report 18096219 (Version 1)
Quarter: 2020Q3

REPORT INFORMATION
  Report Type: Spontaneous
  Country: US (occurrence: US)
  Receive Date: 20200731
  Receipt Date: 20200731
  Transmission Date: 20201103
  Serious: Yes (Death)
  Sender: FDA-Public Use
  Company Number: US-ROCHE-2651657

PATIENT
  Sex: Male

DRUGS (13)
  1. FINASTERIDE. [Concomitant]
     Active Substance: FINASTERIDE
  2. PIOGLITAZONE. [Concomitant]
     Active Substance: PIOGLITAZONE
  3. OMEPRAZOLE. [Concomitant]
     Active Substance: OMEPRAZOLE
  4. LUCENTIS [Suspect]
     Active Substance: RANIBIZUMAB
  5. PANTOPRAZOLE [Concomitant]
     Active Substance: PANTOPRAZOLE
  6. VASERETIC [Concomitant]
     Active Substance: ENALAPRIL MALEATE\HYDROCHLOROTHIAZIDE
     Dosage: 10.25 MG
  7. GLIPIZIDE ER [Concomitant]
     Active Substance: GLIPIZIDE
     Dosage: 2.5 MG
  8. ATORVASTATIN [Concomitant]
     Active Substance: ATORVASTATIN
  9. PIOGLITAZONE. [Concomitant]
     Active Substance: PIOGLITAZONE
  10. LUCENTIS [Suspect]
     Active Substance: RANIBIZUMAB
     Indication: TYPE 2 DIABETES MELLITUS
     Dosage: 0.3MG /0.05ML INTO THE RIGHT EYE
     Route: 050
  11. LUCENTIS [Suspect]
     Active Substance: RANIBIZUMAB
  12. LEVOTHYROXINE. [Concomitant]
     Active Substance: LEVOTHYROXINE
     Dosage: 75 MCG
  13. METFORMIN [Concomitant]
     Active Substance: METFORMIN HYDROCHLORIDE

REACTIONS (1)
  - Death [Fatal]
